FAERS Safety Report 21032713 (Version 1)
Quarter: 2022Q2

REPORT INFORMATION
  Report Type: Spontaneous
  Country: US (occurrence: None)
  Receive Date: 20220630
  Receipt Date: 20220630
  Transmission Date: 20220721
  Serious: Yes (Hospitalization)
  Sender: FDA-Public Use
  Company Number: None

PATIENT
  Sex: Female

DRUGS (1)
  1. ENBREL [Suspect]
     Active Substance: ETANERCEPT
     Indication: Rheumatoid arthritis
     Dosage: 50 MG/ML ONCE A WEEK SUBCUTANEOUS?
     Route: 058
     Dates: start: 20201002

REACTIONS (4)
  - COVID-19 [None]
  - Pneumonia [None]
  - Blood pressure increased [None]
  - Ear pain [None]
